FAERS Safety Report 5307334-7 (Version None)
Quarter: 2007Q2

REPORT INFORMATION
  Report Type: 
  Country: None (occurrence: None)
  Receive Date: 20070425
  Receipt Date: 20070411
  Transmission Date: 20071010
  Serious: Yes (Hospitalization)
  Sender: FDA-Public Use
  Company Number: US-MERCK-0704USA04288

PATIENT
  Age: 74 Year
  Sex: Female
  Weight: 50 kg

DRUGS (7)
  1. INDOCIN [Suspect]
     Route: 048
     Dates: start: 20040101, end: 20050201
  2. CALTRATE [Concomitant]
     Route: 065
  3. AGGRENOX [Suspect]
     Route: 065
     Dates: end: 20050201
  4. POTASSIUM CHLORIDE [Concomitant]
     Route: 065
  5. BENICAR HCT [Concomitant]
     Route: 065
     Dates: end: 20050201
  6. COREG [Concomitant]
     Route: 065
  7. VERAPAMIL [Concomitant]
     Route: 065

REACTIONS (3)
  - DIVERTICULUM [None]
  - GASTROINTESTINAL ULCER HAEMORRHAGE [None]
  - HELICOBACTER INFECTION [None]
